FAERS Safety Report 7872029-2 (Version None)
Quarter: 2011Q4

REPORT INFORMATION
  Report Type: 
  Country: None (occurrence: None)
  Receive Date: 20111029
  Receipt Date: 20110314
  Transmission Date: 20120403
  Serious: No
  Sender: FDA-Public Use
  Company Number: US-AMGEN-USASP2011014154

PATIENT
  Sex: Female

DRUGS (5)
  1. ENBREL [Suspect]
     Indication: PSORIATIC ARTHROPATHY
  2. METHOTREXATE [Concomitant]
     Dosage: UNK
  3. HUMIRA [Concomitant]
  4. ENBREL [Suspect]
     Indication: PSORIASIS
  5. ENBREL [Suspect]
     Indication: ANKYLOSING SPONDYLITIS
     Dosage: 25 MG, 2 TIMES/WK
     Dates: start: 20030101

REACTIONS (5)
  - INJECTION SITE HAEMATOMA [None]
  - GASTROOESOPHAGEAL REFLUX DISEASE [None]
  - PSORIATIC ARTHROPATHY [None]
  - ALOPECIA [None]
  - INJECTION SITE PAIN [None]
